FAERS Safety Report 22704411 (Version 3)
Quarter: 2023Q4

REPORT INFORMATION
  Report Type: Spontaneous
  Country: IT (occurrence: IT)
  Receive Date: 20230714
  Receipt Date: 20231002
  Transmission Date: 20240109
  Serious: No
  Sender: FDA-Public Use
  Company Number: IT-BIOGEN-2023BI01215689

PATIENT
  Age: 13 Year
  Sex: Female

DRUGS (1)
  1. TYSABRI [Suspect]
     Active Substance: NATALIZUMAB
     Indication: Clinically isolated syndrome
     Route: 050

REACTIONS (3)
  - Off label use [Recovered/Resolved]
  - Rash [Unknown]
  - Urticaria [Unknown]
